FAERS Safety Report 16289935 (Version 2)
Quarter: 2019Q2

REPORT INFORMATION
  Report Type: Spontaneous
  Country: AU (occurrence: AU)
  Receive Date: 20190509
  Receipt Date: 20190610
  Transmission Date: 20190711
  Serious: Yes (Other)
  Sender: FDA-Public Use
  Company Number: AU-JNJFOC-20190445223

PATIENT
  Age: 45 Year
  Sex: Female

DRUGS (3)
  1. CYCLOPHOSPHAMIDE MONOHYDRATE [Suspect]
     Active Substance: CYCLOPHOSPHAMIDE
     Indication: BREAST CANCER
     Route: 065
  2. DOXORUBICIN HYDROCHLORIDE. [Suspect]
     Active Substance: DOXORUBICIN HYDROCHLORIDE
     Indication: BREAST CANCER
     Route: 065
  3. PACLITAXEL. [Suspect]
     Active Substance: PACLITAXEL
     Indication: BREAST CANCER
     Route: 065

REACTIONS (8)
  - Malignant neoplasm progression [Unknown]
  - Gastrointestinal toxicity [Unknown]
  - Cardiac failure congestive [Unknown]
  - Ejection fraction decreased [Unknown]
  - Breast cancer metastatic [Unknown]
  - Thrombosis [Unknown]
  - Sepsis [Unknown]
  - Disease progression [Unknown]
